FAERS Safety Report 7686793 (Version 8)
Quarter: 2013Q3

REPORT INFORMATION
  Report Type: Report from Study
  Country: JP (occurrence: JP)
  Receive Date: 20101130
  Receipt Date: 20130923
  Transmission Date: 20140515
  Serious: Yes (Hospitalization, Other)
  Sender: FDA-Public Use
  Company Number: JP-JNJFOC-20101108379

PATIENT
  Age: 28 Year
  Sex: Male

DRUGS (67)
  1. PREZISTA [Suspect]
     Indication: HIV INFECTION
     Route: 048
     Dates: start: 20070401
  2. PREZISTA [Suspect]
     Indication: HIV INFECTION
     Route: 048
     Dates: start: 20060905, end: 20080331
  3. NORVIR [Suspect]
     Indication: HIV INFECTION
     Route: 048
     Dates: start: 20070401, end: 20110725
  4. TRUVADA [Suspect]
     Indication: HIV INFECTION
     Route: 048
     Dates: start: 20070401
  5. EPIVIR [Suspect]
     Indication: HIV INFECTION
     Route: 048
     Dates: start: 20021205, end: 20060904
  6. EPIVIR [Suspect]
     Indication: HIV INFECTION
     Route: 048
     Dates: start: 20010628, end: 20010701
  7. EPIVIR [Suspect]
     Indication: HIV INFECTION
     Route: 048
     Dates: start: 20010730, end: 20020603
  8. EPIVIR [Suspect]
     Indication: HIV INFECTION
     Route: 048
     Dates: start: 19980409, end: 20000104
  9. ISENTRESS [Suspect]
     Indication: HIV INFECTION
     Route: 048
     Dates: start: 20070423
  10. ISENTRESS [Suspect]
     Indication: HIV INFECTION
     Route: 048
     Dates: start: 20080401
  11. T-20 [Suspect]
     Indication: PRODUCT USED FOR UNKNOWN INDICATION
     Dosage: 2LU/DAY
     Route: 065
     Dates: start: 20060905, end: 20070422
  12. MK-0518 [Suspect]
     Indication: HIV INFECTION
     Route: 065
     Dates: start: 20070423
  13. ZITHROMAC [Suspect]
     Indication: HIV INFECTION
     Route: 048
     Dates: start: 20070401, end: 20070807
  14. ZITHROMAC [Suspect]
     Indication: PROPHYLAXIS
     Route: 048
     Dates: start: 20070401, end: 20070807
  15. BAKTAR [Concomitant]
     Indication: PROPHYLAXIS
     Route: 048
     Dates: start: 20070401, end: 20071106
  16. CROSS EIGHT M [Concomitant]
     Indication: HAEMORRHOIDS
     Dosage: DOSE GIVEN ONCE 1/3 DAYS
     Route: 042
     Dates: start: 20070401, end: 20120212
  17. CROSS EIGHT M [Concomitant]
     Indication: HAEMORRHOIDS
     Dosage: DOSE GIVEN ONCE 1/3 DAYS
     Route: 042
     Dates: start: 20120213, end: 20120217
  18. CROSS EIGHT M [Concomitant]
     Indication: HAEMORRHOIDS
     Dosage: DOSE GIVEN ONCE 1/3 DAYS
     Route: 042
     Dates: start: 20120218, end: 20120225
  19. CROSS EIGHT M [Concomitant]
     Indication: HAEMORRHOIDS
     Dosage: DOSE GIVEN ONCE 1/3 DAYS
     Route: 042
     Dates: start: 20120320, end: 20120709
  20. CROSS EIGHT M [Concomitant]
     Indication: HAEMORRHOIDS
     Route: 042
     Dates: start: 20120710
  21. CROSS EIGHT M [Concomitant]
     Indication: HAEMORRHOIDS
     Dosage: DOSE GIVEN ONCE 1/3 DAYS
     Route: 042
     Dates: start: 20120226, end: 20120301
  22. CROSS EIGHT M [Concomitant]
     Indication: HAEMORRHOIDS
     Dosage: DOSE GIVEN ONCE 1/3 DAYS
     Route: 042
     Dates: start: 20120302, end: 20120319
  23. CROSS EIGHT M [Concomitant]
     Indication: LOWER GASTROINTESTINAL HAEMORRHAGE
     Dosage: DOSE GIVEN ONCE 1/3 DAYS
     Route: 042
     Dates: start: 20120302, end: 20120319
  24. CROSS EIGHT M [Concomitant]
     Indication: LOWER GASTROINTESTINAL HAEMORRHAGE
     Dosage: DOSE GIVEN ONCE 1/3 DAYS
     Route: 042
     Dates: start: 20120226, end: 20120301
  25. CROSS EIGHT M [Concomitant]
     Indication: LOWER GASTROINTESTINAL HAEMORRHAGE
     Route: 042
     Dates: start: 20120710
  26. CROSS EIGHT M [Concomitant]
     Indication: LOWER GASTROINTESTINAL HAEMORRHAGE
     Dosage: DOSE GIVEN ONCE 1/3 DAYS
     Route: 042
     Dates: start: 20120320, end: 20120709
  27. CROSS EIGHT M [Concomitant]
     Indication: LOWER GASTROINTESTINAL HAEMORRHAGE
     Dosage: DOSE GIVEN ONCE 1/3 DAYS
     Route: 042
     Dates: start: 20120218, end: 20120225
  28. CROSS EIGHT M [Concomitant]
     Indication: LOWER GASTROINTESTINAL HAEMORRHAGE
     Dosage: DOSE GIVEN ONCE 1/3 DAYS
     Route: 042
     Dates: start: 20120213, end: 20120217
  29. CROSS EIGHT M [Concomitant]
     Indication: LOWER GASTROINTESTINAL HAEMORRHAGE
     Dosage: DOSE GIVEN ONCE 1/3 DAYS
     Route: 042
     Dates: start: 20070401, end: 20120212
  30. CROSS EIGHT M [Concomitant]
     Indication: FACTOR VIII DEFICIENCY
     Dosage: DOSE GIVEN ONCE 1/3 DAYS
     Route: 042
     Dates: start: 20120320, end: 20120709
  31. CROSS EIGHT M [Concomitant]
     Indication: FACTOR VIII DEFICIENCY
     Dosage: DOSE GIVEN ONCE 1/3 DAYS
     Route: 042
     Dates: start: 20070401, end: 20120212
  32. CROSS EIGHT M [Concomitant]
     Indication: FACTOR VIII DEFICIENCY
     Dosage: DOSE GIVEN ONCE 1/3 DAYS
     Route: 042
     Dates: start: 20120213, end: 20120217
  33. CROSS EIGHT M [Concomitant]
     Indication: FACTOR VIII DEFICIENCY
     Route: 042
     Dates: start: 20120710
  34. CROSS EIGHT M [Concomitant]
     Indication: FACTOR VIII DEFICIENCY
     Dosage: DOSE GIVEN ONCE 1/3 DAYS
     Route: 042
     Dates: start: 20120226, end: 20120301
  35. CROSS EIGHT M [Concomitant]
     Indication: FACTOR VIII DEFICIENCY
     Dosage: DOSE GIVEN ONCE 1/3 DAYS
     Route: 042
     Dates: start: 20120218, end: 20120225
  36. CROSS EIGHT M [Concomitant]
     Indication: FACTOR VIII DEFICIENCY
     Dosage: DOSE GIVEN ONCE 1/3 DAYS
     Route: 042
     Dates: start: 20120302, end: 20120319
  37. GASCON [Concomitant]
     Indication: ABDOMINAL DISTENSION
     Route: 048
     Dates: start: 20090408
  38. BIOFERMIN R [Concomitant]
     Indication: ABDOMINAL DISTENSION
     Route: 048
     Dates: start: 20090408
  39. FERO-GRADUMET [Concomitant]
     Indication: ANAEMIA
     Route: 065
     Dates: start: 20120215, end: 20120710
  40. MAGLAX [Concomitant]
     Indication: CONSTIPATION PROPHYLAXIS
     Route: 048
     Dates: start: 20120214, end: 20120502
  41. POSTERISAN [Concomitant]
     Indication: GASTROINTESTINAL HAEMORRHAGE
     Route: 061
     Dates: start: 20120220, end: 20120316
  42. NERIPROCT SUPPOSITORY [Concomitant]
     Indication: HAEMORRHOIDS
     Route: 054
     Dates: start: 20120402, end: 20120902
  43. NERIPROCT SUPPOSITORY [Concomitant]
     Indication: HAEMORRHOIDS
     Dosage: 1-3 TIMES A DAY
     Route: 054
     Dates: start: 20120220, end: 20120321
  44. NORVIR [Concomitant]
     Indication: HIV INFECTION
     Route: 048
     Dates: start: 20110726
  45. NERIPROCT OINTMENT [Concomitant]
     Indication: HAEMORRHOIDS
     Route: 061
     Dates: start: 20120903, end: 20121029
  46. BORRAZA-G [Concomitant]
     Indication: HAEMORRHOIDS
     Route: 061
     Dates: start: 20120903
  47. INVIRASE [Concomitant]
     Indication: HIV INFECTION
     Route: 048
     Dates: start: 19961217, end: 19980408
  48. HIVID [Concomitant]
     Indication: HIV INFECTION
     Route: 048
     Dates: start: 19961217, end: 19980408
  49. ZERIT [Concomitant]
     Indication: HIV INFECTION
     Route: 048
     Dates: start: 20010730, end: 20020603
  50. ZERIT [Concomitant]
     Indication: HIV INFECTION
     Route: 048
     Dates: start: 19980409, end: 20000104
  51. ZERIT [Concomitant]
     Indication: HIV INFECTION
     Route: 048
     Dates: start: 20010628, end: 20010701
  52. VIRACEPT [Concomitant]
     Indication: HIV INFECTION
     Route: 048
     Dates: start: 19980409, end: 20000104
  53. VIRACEPT [Concomitant]
     Indication: HIV INFECTION
     Route: 048
     Dates: start: 20010628, end: 20010701
  54. VIRACEPT [Concomitant]
     Indication: HIV INFECTION
     Route: 048
     Dates: start: 20010730, end: 20021005
  55. ZIAGEN [Concomitant]
     Indication: HIV INFECTION
     Route: 048
     Dates: start: 20000105, end: 20000817
  56. PROZEI [Concomitant]
     Indication: HIV INFECTION
     Route: 048
     Dates: start: 20000105, end: 20000124
  57. PROZEI [Concomitant]
     Indication: HIV INFECTION
     Route: 048
     Dates: start: 20000125, end: 20000817
  58. STOCRIN [Concomitant]
     Indication: HIV INFECTION
     Route: 048
     Dates: start: 20021205, end: 20050616
  59. STOCRIN [Concomitant]
     Indication: HIV INFECTION
     Route: 048
     Dates: start: 20000105, end: 20000817
  60. VIDEX [Concomitant]
     Indication: HIV INFECTION
     Route: 048
     Dates: start: 20010420, end: 20010421
  61. VIDEX [Concomitant]
     Indication: HIV INFECTION
     Route: 048
     Dates: start: 20010611, end: 20010614
  62. KALETRA [Concomitant]
     Indication: HIV INFECTION
     Route: 048
     Dates: start: 20010420, end: 20010421
  63. KALETRA [Concomitant]
     Indication: HIV INFECTION
     Route: 048
     Dates: start: 20010611, end: 20010614
  64. AZITHROMYCIN HYDRATE [Concomitant]
     Indication: HIV INFECTION
     Route: 048
     Dates: start: 20010806, end: 20020331
  65. COMBIVIR [Concomitant]
     Indication: HIV INFECTION
     Route: 048
     Dates: start: 20020604, end: 20021005
  66. RETROVIR [Concomitant]
     Indication: HIV INFECTION
     Route: 048
     Dates: start: 20021205, end: 20060223
  67. NORVIR [Concomitant]
     Indication: HIV INFECTION
     Route: 048
     Dates: start: 20110726

REACTIONS (12)
  - Haemorrhoids [Recovering/Resolving]
  - Bradycardia [Recovering/Resolving]
  - Gastrointestinal haemorrhage [Recovering/Resolving]
  - Haemoglobin decreased [Recovered/Resolved]
  - Liver function test abnormal [Recovering/Resolving]
  - Atrioventricular block second degree [Not Recovered/Not Resolved]
  - Anaemia [Recovered/Resolved]
  - Hepatic function abnormal [Recovering/Resolving]
  - Abdominal distension [Recovering/Resolving]
  - Blood triglycerides increased [Recovering/Resolving]
  - Malaise [Recovering/Resolving]
  - Liver function test abnormal [Recovered/Resolved]
